FAERS Safety Report 9579864 (Version 3)
Quarter: 2013Q4

REPORT INFORMATION
  Report Type: Report from Study
  Country: AR (occurrence: AR)
  Receive Date: 20131002
  Receipt Date: 20131115
  Transmission Date: 20140711
  Serious: Yes (Hospitalization)
  Sender: FDA-Public Use
  Company Number: AR-ROCHE-1283012

PATIENT
  Age: 85 Year
  Sex: Female

DRUGS (1)
  1. RANIBIZUMAB [Suspect]
     Indication: MACULOPATHY
     Route: 050
     Dates: start: 2012

REACTIONS (6)
  - Accident [Unknown]
  - Fall [Unknown]
  - Wound [Recovering/Resolving]
  - Musculoskeletal discomfort [Unknown]
  - Hip fracture [Recovering/Resolving]
  - Drug ineffective [Unknown]
